FAERS Safety Report 9298100 (Version 1)
Quarter: 2013Q2

REPORT INFORMATION
  Report Type: Spontaneous
  Country: FR (occurrence: FR)
  Receive Date: 20130520
  Receipt Date: 20130520
  Transmission Date: 20140414
  Serious: Yes (Other)
  Sender: FDA-Public Use
  Company Number: FR-NOVOPROD-377987

PATIENT
  Age: 57 Year
  Sex: Female

DRUGS (10)
  1. VICTOZA [Suspect]
     Indication: TYPE 2 DIABETES MELLITUS
     Dosage: UNK
     Route: 058
     Dates: start: 2010, end: 20110511
  2. VICTOZA [Suspect]
     Dosage: UNK
     Route: 058
     Dates: start: 201210
  3. BYETTA [Suspect]
     Indication: TYPE 2 DIABETES MELLITUS
     Dosage: TWICE PHARMACEUTICAL DOSES DAILY
     Route: 058
     Dates: start: 20090406, end: 2010
  4. LANTUS [Concomitant]
     Dosage: 5 IU, QD EVENING
     Route: 058
     Dates: end: 201105
  5. LANTUS [Concomitant]
     Dosage: 5 IU, QD EVENING
     Route: 058
     Dates: start: 20110708
  6. GLUCOPHAGE [Concomitant]
     Dosage: 1000 MG, TID
     Route: 048
  7. TRIATEC                            /00116401/ [Concomitant]
     Dosage: 10 MG, QD MORNING
     Route: 048
  8. APROVEL [Concomitant]
     Dosage: 300 MG, QD MORNING
     Route: 048
  9. AMLOR [Concomitant]
     Dosage: 10 MG, QD MORNING
     Route: 048
  10. PRAVADUAL [Concomitant]
     Dosage: ONE PHARMACEUTICAL DOSE DAILY
     Route: 048

REACTIONS (1)
  - Adenocarcinoma of colon [Unknown]
